FAERS Safety Report 9505274 (Version 1)
Quarter: 2013Q1

REPORT INFORMATION
  Report Type: Spontaneous
  Country: US (occurrence: None)
  Receive Date: 20130225
  Receipt Date: 20130225
  Transmission Date: 20140127
  Serious: No
  Sender: FDA-Public Use
  Company Number: 368668

PATIENT
  Age: 59 Year
  Sex: Female

DRUGS (3)
  1. VICTOZA [Suspect]
     Indication: TYPE 2 DIABETES MELLITUS
     Dosage: 1.8
     Route: 058
  2. COZAAR (LOSARTAN POTASSIUM) [Concomitant]
  3. FISH OIL (FISH OIL) [Concomitant]

REACTIONS (1)
  - Dyspnoea [None]
